FAERS Safety Report 4289305-5 (Version None)
Quarter: 2004Q1

REPORT INFORMATION
  Report Type: 
  Country: None (occurrence: None)
  Receive Date: 20040206
  Receipt Date: 20040129
  Transmission Date: 20041129
  Serious: Yes (Death, Hospitalization)
  Sender: FDA-Public Use
  Company Number: 138195USA

PATIENT
  Age: 46 Year
  Sex: Male

DRUGS (27)
  1. MERCAPTOPURINE [Suspect]
     Indication: CROHN'S DISEASE
     Dates: start: 19970522, end: 19970604
  2. CANDESARTAN [Suspect]
     Indication: HYPERTENSION
     Dosage: 16 MILLIGRAM  QD ORAL
     Route: 048
     Dates: start: 19990719, end: 19990725
  3. METHOTREXATE [Suspect]
     Dates: start: 19970605
  4. METOPROLOL SUCCINATE [Suspect]
     Indication: CROHN'S DISEASE
     Dates: end: 19990630
  5. NITROGLYCERIN [Suspect]
     Indication: CHEST PAIN
     Dates: start: 19971201, end: 19971201
  6. PREDNISONE [Suspect]
     Indication: CROHN'S DISEASE
     Dates: end: 19990728
  7. ROSIGLITAZONE MALEATE [Suspect]
     Indication: DIABETES MELLITUS INSULIN-DEPENDENT
     Dosage: 4 MILLIGRAM QD ORAL
     Route: 048
     Dates: start: 19990630
  8. TROGLITAZONE [Suspect]
     Indication: DIABETES MELLITUS INSULIN-DEPENDENT
     Dates: start: 19970409, end: 19970508
  9. HYDROCORTISONE [Concomitant]
  10. PERCOCET [Concomitant]
  11. ATORVASTATIN [Concomitant]
  12. INSULIN [Concomitant]
  13. REPAGLINIDE [Concomitant]
  14. ALPRAZOLAM [Concomitant]
  15. AMITRIPTYLINE [Concomitant]
  16. METFORMIN HCL [Concomitant]
  17. SILDENAFIL [Concomitant]
  18. PAROXETINE [Concomitant]
  19. MESALAZINE [Concomitant]
  20. METRONIDAZOLE [Concomitant]
  21. IRON SALT [Concomitant]
  22. CIPROFLOXACIN [Concomitant]
  23. ROXICET [Concomitant]
  24. PARACETAMOL [Concomitant]
  25. HYDROCORTISONE [Concomitant]
  26. NABUMETONE [Concomitant]
  27. FAMOTIDINE [Concomitant]

REACTIONS (57)
  - ACIDOSIS [None]
  - ACUTE MYOCARDIAL INFARCTION [None]
  - ANGINA PECTORIS [None]
  - ANXIETY [None]
  - AORTIC ATHEROSCLEROSIS [None]
  - ARRHYTHMIA [None]
  - ASTHENIA [None]
  - BLOOD BILIRUBIN INCREASED [None]
  - BLOOD TRIGLYCERIDES INCREASED [None]
  - BURSITIS [None]
  - CARDIAC FAILURE CONGESTIVE [None]
  - CARDIO-RESPIRATORY ARREST [None]
  - CHEST PAIN [None]
  - COAGULOPATHY [None]
  - COLITIS [None]
  - CONDITION AGGRAVATED [None]
  - CORONARY ARTERY DISEASE [None]
  - CORONARY ARTERY STENOSIS [None]
  - CROHN'S DISEASE [None]
  - DIABETES MELLITUS INADEQUATE CONTROL [None]
  - DIZZINESS [None]
  - DYSPNOEA EXERTIONAL [None]
  - ELECTROLYTE IMBALANCE [None]
  - ESCHERICHIA INFECTION [None]
  - FEELING COLD [None]
  - FISTULA [None]
  - HAEMORRHAGE [None]
  - HEADACHE [None]
  - HEPATIC CIRRHOSIS [None]
  - HEPATIC FAILURE [None]
  - HEPATITIS [None]
  - HYPOAESTHESIA [None]
  - HYPOGLYCAEMIA [None]
  - HYPONATRAEMIA [None]
  - HYPOTENSION [None]
  - ILEITIS [None]
  - INTERMITTENT CLAUDICATION [None]
  - ISCHAEMIA [None]
  - JOINT SWELLING [None]
  - LIVER FUNCTION TEST ABNORMAL [None]
  - NEUROPATHY PERIPHERAL [None]
  - ORAL MUCOSAL PETECHIAE [None]
  - ORTHOSTATIC HYPOTENSION [None]
  - PANCREATITIS [None]
  - PARAESTHESIA [None]
  - PERITONEAL ADHESIONS [None]
  - PLEURAL EFFUSION [None]
  - POLYP [None]
  - PROTHROMBIN TIME PROLONGED [None]
  - PURULENCE [None]
  - RECTAL HAEMORRHAGE [None]
  - RENAL FAILURE [None]
  - SEPSIS [None]
  - SINUS TACHYCARDIA [None]
  - STAPHYLOCOCCAL INFECTION [None]
  - VENTRICULAR TACHYCARDIA [None]
  - WEIGHT DECREASED [None]
